FAERS Safety Report 10211499 (Version 1)
Quarter: 2014Q2

REPORT INFORMATION
  Report Type: Spontaneous
  Country: US (occurrence: US)
  Receive Date: 20140602
  Receipt Date: 20140602
  Transmission Date: 20141212
  Serious: Yes (Other)
  Sender: FDA-Public Use
  Company Number: US-BAXTER-2014BAX026851

PATIENT
  Age: 24 Year
  Sex: Female

DRUGS (4)
  1. CYCLOPHOSPHAMIDE FOR INJECTION, USP [Suspect]
     Indication: THALASSAEMIA BETA
     Route: 065
  2. BUSULFAN [Suspect]
     Indication: THALASSAEMIA BETA
     Route: 065
  3. FLUDARABINE [Suspect]
     Indication: THALASSAEMIA BETA
     Route: 065
  4. ALEMTUZUMAB [Suspect]
     Indication: THALASSAEMIA BETA
     Route: 065

REACTIONS (2)
  - Cytomegalovirus colitis [Recovered/Resolved]
  - Aplasia pure red cell [Recovered/Resolved]
